FAERS Safety Report 15546377 (Version 1)
Quarter: 2018Q4

REPORT INFORMATION
  Report Type: Spontaneous
  Country: US (occurrence: US)
  Receive Date: 20181023
  Receipt Date: 20181023
  Transmission Date: 20190205
  Serious: Yes (Hospitalization)
  Sender: FDA-Public Use
  Company Number: None

PATIENT
  Sex: Female

DRUGS (8)
  1. ASPIRIN 81MG [Concomitant]
     Active Substance: ASPIRIN
  2. CALCIFEROL 8000 [Concomitant]
  3. HUMIRA [Suspect]
     Active Substance: ADALIMUMAB
     Indication: RHEUMATOID ARTHRITIS
     Dosage: ?          OTHER FREQUENCY:Q 2 WEEKS;?
     Route: 058
     Dates: start: 20170824
  4. FOLIC ACID 1MG [Concomitant]
  5. ONDANSETRON 4MG ODT [Concomitant]
  6. METHOTREXATE 2.5 MG [Concomitant]
     Active Substance: METHOTREXATE
  7. MULTIVITAMIN [Concomitant]
     Active Substance: VITAMINS
  8. FOSINOPRIL 10MG [Concomitant]

REACTIONS (2)
  - Intentional dose omission [None]
  - Cholecystectomy [None]
